FAERS Safety Report 22170117 (Version 1)
Quarter: 2023Q2

REPORT INFORMATION
  Report Type: Spontaneous
  Country: US (occurrence: None)
  Receive Date: 20230404
  Receipt Date: 20230404
  Transmission Date: 20230722
  Serious: Yes (Other)
  Sender: FDA-Public Use
  Company Number: 2023A072887

PATIENT
  Age: 29918 Day
  Sex: Female
  Weight: 81.6 kg

DRUGS (1)
  1. FARXIGA [Suspect]
     Active Substance: DAPAGLIFLOZIN PROPANEDIOL
     Indication: Kidney infection
     Route: 048
     Dates: start: 20221223, end: 20230323

REACTIONS (4)
  - Urticaria [Unknown]
  - Pruritus [Not Recovered/Not Resolved]
  - Somnolence [Unknown]
  - Sleep disorder [Unknown]

NARRATIVE: CASE EVENT DATE: 20230201
